FAERS Safety Report 5837530-1 (Version None)
Quarter: 2008Q3

REPORT INFORMATION
  Report Type: 
  Country: None (occurrence: None)
  Receive Date: 20080807
  Receipt Date: 20080728
  Transmission Date: 20090109
  Serious: Yes (Other)
  Sender: FDA-Public Use
  Company Number: CO-PFIZER INC-2008061918

PATIENT
  Sex: Female

DRUGS (4)
  1. EPAMIN [Suspect]
     Indication: BRAIN NEOPLASM
     Route: 048
  2. EPAMIN [Suspect]
     Indication: CONVULSION
     Dosage: TEXT:100 MG TID EVERY DAY TDD:100 MG
     Route: 048
  3. VERAPAMIL [Concomitant]
  4. CAPTOPRIL [Concomitant]

REACTIONS (1)
  - CONVULSION [None]
